FAERS Safety Report 4578311-9 (Version None)
Quarter: 2005Q1

REPORT INFORMATION
  Report Type: 
  Country: None (occurrence: None)
  Receive Date: 20050209
  Receipt Date: 20050131
  Transmission Date: 20050727
  Serious: Yes (Hospitalization)
  Sender: FDA-Public Use
  Company Number: K200500175

PATIENT
  Age: 5 Year
  Sex: Female
  Weight: 25.9 kg

DRUGS (1)
  1. BICILLIN L-A [Suspect]
     Indication: PHARYNGITIS STREPTOCOCCAL
     Dosage: 600,000 U, SINGLE, INTRAMUSCULAR
     Route: 030
     Dates: start: 20050126, end: 20050126

REACTIONS (2)
  - CELLULITIS [None]
  - PAIN IN EXTREMITY [None]
